FAERS Safety Report 8383188-X (Version None)
Quarter: 2012Q1

REPORT INFORMATION
  Report Type: 
  Country: None (occurrence: None)
  Receive Date: 20120323
  Receipt Date: 20110509
  Transmission Date: 20120608
  Serious: Yes (Hospitalization)
  Sender: FDA-Public Use
  Company Number: 163-21880-11051279

PATIENT
  Age: 66 Year
  Sex: Male

DRUGS (17)
  1. REVLIMID [Suspect]
     Indication: MULTIPLE MYELOMA
     Dosage: 25 MG, 1 IN 1 D, PO 15 MG, 1 IN 1 D, PO
     Route: 048
     Dates: start: 20100601, end: 20100101
  2. REVLIMID [Suspect]
     Indication: MULTIPLE MYELOMA
     Dosage: 25 MG, 1 IN 1 D, PO 15 MG, 1 IN 1 D, PO
     Route: 048
     Dates: start: 20110301
  3. REVLIMID [Suspect]
     Indication: MULTIPLE MYELOMA
     Dosage: 25 MG, 1 IN 1 D, PO 15 MG, 1 IN 1 D, PO
     Route: 048
     Dates: start: 20100401
  4. ADVAIR HFA [Concomitant]
  5. CO Q10 (UBIDECARENONE) [Concomitant]
  6. SENNA (SENNA) [Concomitant]
  7. OXYCODONE HCL [Concomitant]
  8. OMEPRAZOLE [Concomitant]
  9. VITAMIN D [Concomitant]
  10. ASPIRIN [Concomitant]
  11. DEXAMETHASONE [Concomitant]
  12. ALBUTEROL [Concomitant]
  13. OXYCONTIN [Concomitant]
  14. GLUCOSAMINE CHONDROITIN (GLUCOSAMIN W/CHONDROITIN SULFATE) [Concomitant]
  15. ZOMETA [Concomitant]
  16. CALCIUM D (OS-CAL) [Concomitant]
  17. CYMBALTA [Concomitant]

REACTIONS (1)
  - LOSS OF CONSCIOUSNESS [None]
